FAERS Safety Report 11213629 (Version 2)
Quarter: 2015Q2

REPORT INFORMATION
  Report Type: Spontaneous
  Country: JP (occurrence: JP)
  Receive Date: 20150623
  Receipt Date: 20150630
  Transmission Date: 20150821
  Serious: Yes (Hospitalization)
  Sender: FDA-Public Use
  Company Number: JP-MYLANLABS-2015M1019587

PATIENT

DRUGS (38)
  1. UNASTIN TABLETS 60MG [Suspect]
     Active Substance: LOXOPROFEN SODIUM
     Indication: ARTHRALGIA
     Dosage: 4 DAYS
     Route: 048
     Dates: start: 201310
  2. CLARITHROMYCIN TAB. 200MG ^MYLAN^ [Suspect]
     Active Substance: CLARITHROMYCIN
     Indication: SCAB
  3. CALONAL [Suspect]
     Active Substance: ACETAMINOPHEN
     Indication: NASOPHARYNGITIS
     Dosage: UNK
     Route: 048
     Dates: start: 201309, end: 201309
  4. CARBOCISTEINE [Concomitant]
     Active Substance: CARBOCYSTEINE
     Indication: PAIN IN EXTREMITY
  5. TRANEXAMIC ACID. [Concomitant]
     Active Substance: TRANEXAMIC ACID
     Indication: ORAL PAIN
     Dosage: 2 DAYS
     Route: 048
     Dates: start: 201311
  6. REBAMIPIDE TABLETS 100MG ^MYLAN^ [Suspect]
     Active Substance: REBAMIPIDE
     Indication: ARTHRALGIA
     Dosage: 4 DAYS
     Route: 048
     Dates: start: 201310
  7. REBAMIPIDE TABLETS 100MG ^MYLAN^ [Suspect]
     Active Substance: REBAMIPIDE
     Indication: PERIPHERAL SWELLING
     Dosage: UNK
     Route: 048
     Dates: start: 201310
  8. CLIMAGEN OD TABLETS 10MG [Suspect]
     Active Substance: FAMOTIDINE
     Indication: PRODUCT USED FOR UNKNOWN INDICATION
     Route: 048
  9. MAOTO [Concomitant]
     Active Substance: UNSPECIFIED INGREDIENT
     Indication: ORAL PAIN
  10. UNASTIN TABLETS 60MG [Suspect]
     Active Substance: LOXOPROFEN SODIUM
     Indication: PAIN IN EXTREMITY
  11. UNASTIN TABLETS 60MG [Suspect]
     Active Substance: LOXOPROFEN SODIUM
     Indication: PYREXIA
  12. REBAMIPIDE TABLETS 100MG ^MYLAN^ [Suspect]
     Active Substance: REBAMIPIDE
     Indication: LYMPHADENOPATHY
  13. CALONAL [Suspect]
     Active Substance: ACETAMINOPHEN
     Indication: ARTHRALGIA
     Dosage: UNK
     Route: 048
     Dates: start: 201310
  14. MAOTO [Concomitant]
     Active Substance: UNSPECIFIED INGREDIENT
     Indication: PERIPHERAL SWELLING
     Dosage: 4 DAYS
     Route: 048
     Dates: start: 201310
  15. CARBOCISTEINE [Concomitant]
     Active Substance: CARBOCYSTEINE
     Indication: PERIPHERAL SWELLING
     Dosage: 4 DAYS
     Route: 048
     Dates: start: 201310
  16. CARBOCISTEINE [Concomitant]
     Active Substance: CARBOCYSTEINE
     Indication: ARTHRALGIA
  17. BUCILLAMINE [Concomitant]
     Active Substance: BUCILLAMINE
     Indication: ARTHRALGIA
     Dosage: 14 DAYS
     Route: 048
  18. REBAMIPIDE TABLETS 100MG ^MYLAN^ [Suspect]
     Active Substance: REBAMIPIDE
     Indication: PYREXIA
  19. CALONAL [Suspect]
     Active Substance: ACETAMINOPHEN
     Indication: ORAL PAIN
  20. MAOTO [Concomitant]
     Active Substance: UNSPECIFIED INGREDIENT
     Indication: PYREXIA
  21. MAOTO [Concomitant]
     Active Substance: UNSPECIFIED INGREDIENT
     Indication: SCAB
  22. BUCILLAMINE [Concomitant]
     Active Substance: BUCILLAMINE
     Indication: STOMATITIS
  23. TRANEXAMIC ACID. [Concomitant]
     Active Substance: TRANEXAMIC ACID
     Indication: SCAB
  24. REBAMIPIDE TABLETS 100MG ^MYLAN^ [Suspect]
     Active Substance: REBAMIPIDE
     Indication: NASOPHARYNGITIS
     Dosage: 4 DAYS
     Route: 048
  25. MAOTO [Concomitant]
     Active Substance: UNSPECIFIED INGREDIENT
     Indication: PAIN IN EXTREMITY
     Dosage: 2 DAYS
     Route: 048
     Dates: start: 201311
  26. MYSER                              /00115501/ [Concomitant]
     Indication: PRODUCT USED FOR UNKNOWN INDICATION
     Route: 062
  27. CLARITHROMYCIN TAB. 200MG ^MYLAN^ [Suspect]
     Active Substance: CLARITHROMYCIN
     Indication: ORAL PAIN
     Dosage: 2 DAYS
     Route: 048
  28. LEVOFLOXACIN. [Concomitant]
     Active Substance: LEVOFLOXACIN
     Indication: ARTHRALGIA
  29. LEVOFLOXACIN. [Concomitant]
     Active Substance: LEVOFLOXACIN
     Indication: CONJUNCTIVAL HYPERAEMIA
     Dosage: UNK
     Route: 031
     Dates: start: 201310
  30. MAOTO [Concomitant]
     Active Substance: UNSPECIFIED INGREDIENT
     Indication: ARTHRALGIA
  31. REBAMIPIDE TABLETS 100MG ^MYLAN^ [Suspect]
     Active Substance: REBAMIPIDE
     Indication: PAIN IN EXTREMITY
  32. CARBOCISTEINE [Concomitant]
     Active Substance: CARBOCYSTEINE
     Indication: PYREXIA
  33. UNASTIN TABLETS 60MG [Suspect]
     Active Substance: LOXOPROFEN SODIUM
     Indication: NASOPHARYNGITIS
     Dosage: 4 DAYS
     Route: 048
  34. UNASTIN TABLETS 60MG [Suspect]
     Active Substance: LOXOPROFEN SODIUM
     Indication: PERIPHERAL SWELLING
  35. CALONAL [Suspect]
     Active Substance: ACETAMINOPHEN
     Indication: LYMPHADENOPATHY
     Dosage: UNK
     Route: 048
     Dates: start: 201311
  36. CALONAL [Suspect]
     Active Substance: ACETAMINOPHEN
     Indication: SCAB
  37. LEVOFLOXACIN. [Concomitant]
     Active Substance: LEVOFLOXACIN
     Indication: NASOPHARYNGITIS
     Dosage: 4 DAYS
     Route: 048
  38. RINDERON                           /00008501/ [Concomitant]
     Active Substance: BETAMETHASONE
     Indication: CONJUNCTIVAL HYPERAEMIA
     Dosage: UNK
     Route: 031
     Dates: start: 201310

REACTIONS (4)
  - Stevens-Johnson syndrome [Recovering/Resolving]
  - Drug reaction with eosinophilia and systemic symptoms [Recovering/Resolving]
  - Hyperhidrosis [Unknown]
  - Dyspnoea [Unknown]
